FAERS Safety Report 13673097 (Version 1)
Quarter: 2017Q2

REPORT INFORMATION
  Report Type: Spontaneous
  Country: US (occurrence: US)
  Receive Date: 20170621
  Receipt Date: 20170621
  Transmission Date: 20170830
  Serious: Yes (Hospitalization, Other)
  Sender: FDA-Public Use
  Company Number: None

PATIENT
  Age: 74 Year
  Sex: Male
  Weight: 90.72 kg

DRUGS (9)
  1. LEVOTHYROXIN [Concomitant]
     Active Substance: LEVOTHYROXINE
  2. VOLTAREN [Concomitant]
     Active Substance: DICLOFENAC SODIUM
  3. TYLENOL [Concomitant]
     Active Substance: ACETAMINOPHEN
  4. ATENOLOL. [Concomitant]
     Active Substance: ATENOLOL
  5. ASPIRIN. [Concomitant]
     Active Substance: ASPIRIN
  6. ENBREL [Suspect]
     Active Substance: ETANERCEPT
     Indication: RHEUMATOID ARTHRITIS
     Dosage: QUANTITY:2  INJECTIONS PER/WK?
     Dates: start: 2000, end: 2008
  7. ENBREL [Suspect]
     Active Substance: ETANERCEPT
     Indication: PSORIATIC ARTHROPATHY
     Dosage: QUANTITY:2  INJECTIONS PER/WK?
     Dates: start: 2000, end: 2008
  8. LIPITOR [Concomitant]
     Active Substance: ATORVASTATIN CALCIUM
  9. TRAZODONE [Concomitant]
     Active Substance: TRAZODONE HYDROCHLORIDE

REACTIONS (3)
  - Prostate cancer stage IV [None]
  - Bladder cancer stage I, with cancer in situ [None]
  - Squamous cell carcinoma of the tongue [None]

NARRATIVE: CASE EVENT DATE: 201309
